FAERS Safety Report 10905280 (Version 1)
Quarter: 2015Q1

REPORT INFORMATION
  Report Type: Spontaneous
  Country: US (occurrence: None)
  Receive Date: 20150309
  Receipt Date: 20150309
  Transmission Date: 20150721
  Serious: Yes (Disabling)
  Sender: FDA-Public Use
  Company Number: None

PATIENT
  Age: 56 Year
  Sex: Male
  Weight: 85.28 kg

DRUGS (10)
  1. FLOMAX [Suspect]
     Active Substance: TAMSULOSIN HYDROCHLORIDE
     Indication: PROSTATOMEGALY
     Dates: start: 19800101, end: 19850101
  2. VITAMIN B COMPLEX [Concomitant]
     Active Substance: CYANOCOBALAMIN\DEXPANTHENOL\NIACINAMIDE\PYRIDOXINE HYDROCHLORIDE\RIBOFLAVIN 5^-PHOSPHATE SODIUM\THIAMINE HYDROCHLORIDE\VITAMIN B COMPLEX
  3. YOHIMBE [Concomitant]
     Active Substance: YOHIMBINE
  4. SHARK CARTILAGE [Concomitant]
     Active Substance: SHARK CARTILAGE\SHARK, UNSPECIFIED
  5. VITAMIN D [Concomitant]
     Active Substance: CHOLECALCIFEROL
  6. QUERCETIN [Concomitant]
     Active Substance: QUERCETIN
  7. FISH OIL [Concomitant]
     Active Substance: FISH OIL
  8. VITAMIN C [Concomitant]
     Active Substance: ASCORBIC ACID
  9. OAT SEED OIL [Concomitant]
  10. SAW PALMETTO [Concomitant]
     Active Substance: SAW PALMETTO

REACTIONS (1)
  - Erectile dysfunction [None]
